FAERS Safety Report 15578928 (Version 1)
Quarter: 2018Q4

REPORT INFORMATION
  Report Type: Other
  Country: GB (occurrence: GB)
  Receive Date: 20181102
  Receipt Date: 20181102
  Transmission Date: 20190205
  Serious: Yes (Death, Life-Threatening)
  Sender: FDA-Public Use
  Company Number: GB-GENUS_LIFESCIENCES-USA-POI0580201800114

PATIENT
  Age: 69 Year
  Sex: Female

DRUGS (1)
  1. OXYCODONE HCL CAPSULES [Suspect]
     Active Substance: OXYCODONE HYDROCHLORIDE
     Dates: start: 2018, end: 2018

REACTIONS (5)
  - Respiratory depression [Fatal]
  - Suicide attempt [Fatal]
  - Pulmonary embolism [Fatal]
  - Intentional overdose [Fatal]
  - Coma [Fatal]

NARRATIVE: CASE EVENT DATE: 201806
